FAERS Safety Report 5081823-5 (Version None)
Quarter: 2006Q3

REPORT INFORMATION
  Report Type: 
  Country: None (occurrence: None)
  Receive Date: 20060816
  Receipt Date: 20060607
  Transmission Date: 20061208
  Serious: Yes (Hospitalization)
  Sender: FDA-Public Use
  Company Number: 2006UW12385

PATIENT
  Age: 68 Year
  Sex: Female
  Weight: 86.4 kg

DRUGS (5)
  1. PRILOSEC [Suspect]
     Indication: GASTROOESOPHAGEAL REFLUX DISEASE
     Dosage: 18 TABLET PACKAGE SIZE
     Route: 048
     Dates: start: 20060513, end: 20060601
  2. SYNTHROID [Suspect]
     Indication: HYPOTHYROIDISM
  3. CELEBREX [Concomitant]
     Route: 048
  4. ASPIRIN [Concomitant]
     Route: 048
  5. ACETAMINOPHEN [Concomitant]
     Route: 048

REACTIONS (2)
  - CONSTIPATION [None]
  - INTESTINAL OBSTRUCTION [None]
